FAERS Safety Report 9679959 (Version 1)
Quarter: 2013Q4

REPORT INFORMATION
  Report Type: Report from Study
  Country: MX (occurrence: MX)
  Receive Date: 20131110
  Receipt Date: 20131110
  Transmission Date: 20140711
  Serious: Yes (Hospitalization)
  Sender: FDA-Public Use
  Company Number: MX-ROCHE-1298727

PATIENT
  Age: 53 Year
  Sex: Female
  Weight: 55 kg

DRUGS (3)
  1. XELODA [Suspect]
     Indication: COLORECTAL CANCER
     Route: 048
     Dates: start: 201212, end: 201310
  2. OXALIPLATIN [Concomitant]
     Indication: COLORECTAL CANCER
     Route: 042
     Dates: start: 201212, end: 201304
  3. OXALIPLATIN [Concomitant]
     Route: 042
     Dates: start: 201305, end: 201308

REACTIONS (2)
  - Liver injury [Unknown]
  - Infection [Not Recovered/Not Resolved]
